FAERS Safety Report 9737459 (Version 2)
Quarter: 2013Q4

REPORT INFORMATION
  Report Type: Spontaneous
  Country: JP (occurrence: JP)
  Receive Date: 20131206
  Receipt Date: 20131213
  Transmission Date: 20140711
  Serious: Yes (Other)
  Sender: FDA-Public Use
  Company Number: JP-ASTRAZENECA-2013SE88426

PATIENT
  Sex: Male

DRUGS (2)
  1. SYMBICORT TURBUHALER [Suspect]
     Dosage: 2 DF TWO TIMES A DAY
     Route: 055
  2. ONBREZ [Concomitant]
     Dosage: DOSE UNKNOWN
     Route: 065

REACTIONS (1)
  - Lung neoplasm malignant [Unknown]
